FAERS Safety Report 7502544-2 (Version None)
Quarter: 2011Q2

REPORT INFORMATION
  Report Type: 
  Country: None (occurrence: None)
  Receive Date: 20110525
  Receipt Date: 20110512
  Transmission Date: 20111010
  Serious: Yes (Hospitalization, Other)
  Sender: FDA-Public Use
  Company Number: AU-CELGENEUS-008-50794-11040507

PATIENT
  Sex: Male
  Weight: 77.9 kg

DRUGS (6)
  1. PANOBINOSTAT [Suspect]
     Dosage: 40 MILLIGRAM
     Route: 065
     Dates: start: 20110401, end: 20110408
  2. VIDAZA [Suspect]
     Route: 050
     Dates: start: 20110328, end: 20110408
  3. PANOBINOSTAT [Suspect]
  4. VIDAZA [Suspect]
  5. XOLEGEL DUO [Concomitant]
     Indication: GLAUCOMA
     Dosage: 1 DROPS
     Route: 061
  6. CELESTONE [Concomitant]
     Indication: DERMATITIS
     Dosage: SMALL AMOUNT
     Route: 061

REACTIONS (8)
  - LACERATION [None]
  - NEUTROPENIA [None]
  - FALL [None]
  - FATIGUE [None]
  - BRADYCARDIA [None]
  - ORTHOSTATIC HYPOTENSION [None]
  - SYNCOPE [None]
  - WOUND INFECTION [None]
